FAERS Safety Report 5552002-X (Version None)
Quarter: 2007Q4

REPORT INFORMATION
  Report Type: 
  Country: None (occurrence: None)
  Receive Date: 20071129
  Receipt Date: 20070510
  Transmission Date: 20080405
  Serious: Yes (Other)
  Sender: FDA-Public Use
  Company Number: US200703002304

PATIENT
  Age: 45 Year
  Sex: Male
  Weight: 31.3 kg

DRUGS (4)
  1. ZYPREXA [Suspect]
     Dosage: 10 MG
     Dates: start: 20040115, end: 20040331
  2. RISPERIDONE [Concomitant]
  3. DIVALPROEX (VALPROATE SEMISODIUM) [Concomitant]
  4. BUPROPION HCL [Concomitant]

REACTIONS (5)
  - DIABETIC KETOACIDOSIS [None]
  - HYPERTENSION [None]
  - METABOLIC DISORDER [None]
  - TYPE 2 DIABETES MELLITUS [None]
  - VISION BLURRED [None]
